FAERS Safety Report 7265849-9 (Version None)
Quarter: 2011Q1

REPORT INFORMATION
  Report Type: 
  Country: None (occurrence: None)
  Receive Date: 20110131
  Receipt Date: 20110127
  Transmission Date: 20110831
  Serious: Yes (Other)
  Sender: FDA-Public Use
  Company Number: A0909851A

PATIENT
  Sex: Male

DRUGS (9)
  1. ACAI BERRY [Concomitant]
  2. TRILIPIX [Concomitant]
  3. LOPERAMIDE [Concomitant]
  4. RESVERATROL [Concomitant]
  5. LOVAZA [Suspect]
     Dosage: 2CAP TWICE PER DAY
     Route: 048
     Dates: start: 20100901
  6. TAURINE [Concomitant]
  7. OMEPRAZOLE [Concomitant]
  8. AMLODIPINE BESYLATE [Concomitant]
  9. ASPIRIN [Concomitant]

REACTIONS (3)
  - HEPATIC ENZYME INCREASED [None]
  - ALANINE AMINOTRANSFERASE INCREASED [None]
  - ASPARTATE AMINOTRANSFERASE INCREASED [None]
